FAERS Safety Report 7145074-2 (Version None)
Quarter: 2010Q4

REPORT INFORMATION
  Report Type: 
  Country: None (occurrence: None)
  Receive Date: 20101208
  Receipt Date: 20101126
  Transmission Date: 20110411
  Serious: Yes (Other)
  Sender: FDA-Public Use
  Company Number: PHHY2010CH80990

PATIENT
  Sex: Female

DRUGS (4)
  1. ZOMETA [Suspect]
     Indication: MULTIPLE MYELOMA
     Dosage: 4 MG, UNK
     Route: 042
     Dates: start: 20080701, end: 20100201
  2. VELCADE [Concomitant]
     Indication: MULTIPLE MYELOMA
     Dosage: UNK
     Route: 042
  3. ENDOXAN [Concomitant]
     Indication: MULTIPLE MYELOMA
     Dosage: UNK
  4. PREDNISOLONE [Concomitant]
     Indication: OSTEOARTHRITIS
     Dosage: UNK

REACTIONS (2)
  - ORAL SURGERY [None]
  - OSTEONECROSIS OF JAW [None]
